FAERS Safety Report 8911602 (Version 3)
Quarter: 2012Q4

REPORT INFORMATION
  Report Type: 
  Country: US (occurrence: US)
  Receive Date: 20121116
  Receipt Date: 20121212
  Transmission Date: 20130627
  Serious: Yes (Hospitalization)
  Sender: FDA-Public Use
  Company Number: US-AMGEN-USASP2012072631

PATIENT
  Age: 59 Year
  Sex: Female
  Weight: 65.31 kg

DRUGS (7)
  1. PROLIA [Suspect]
     Indication: OSTEOPOROSIS POSTMENOPAUSAL
     Dosage: 60 mg/ml, q6mo
     Route: 058
     Dates: start: 20111116
  2. PROLIA [Suspect]
     Dosage: 60 mg/ml, q6mo
     Route: 058
     Dates: start: 20120517
  3. PROLIA [Suspect]
     Dosage: 60 mg/ml, q6mo
     Route: 058
     Dates: start: 20121126
  4. CALCIUM [Concomitant]
  5. CALCIUM MAGNESIUM [Concomitant]
     Dosage: UNK UNK, bid
     Route: 048
  6. IBUPROFEN [Concomitant]
     Dosage: 800 mg, tid
     Route: 048
  7. ENOXAPARIN SODIUM [Concomitant]
     Dosage: 0.4 ml, qd for 21 days
     Route: 058

REACTIONS (6)
  - Endometrial cancer [Not Recovered/Not Resolved]
  - Full blood count decreased [Not Recovered/Not Resolved]
  - White blood cell count abnormal [Not Recovered/Not Resolved]
  - Red blood cell count abnormal [Not Recovered/Not Resolved]
  - Coagulopathy [Not Recovered/Not Resolved]
  - Infection susceptibility increased [Not Recovered/Not Resolved]
